FAERS Safety Report 20569892 (Version 1)
Quarter: 2022Q1

REPORT INFORMATION
  Report Type: Spontaneous
  Country: JP (occurrence: JP)
  Receive Date: 20220309
  Receipt Date: 20220309
  Transmission Date: 20220424
  Serious: Yes (Other)
  Sender: FDA-Public Use
  Company Number: JP-NOVARTISPH-NVSJ2022JP004208

PATIENT
  Sex: Female

DRUGS (2)
  1. AZOPT [Suspect]
     Active Substance: BRINZOLAMIDE
     Indication: Glaucoma
     Dosage: UNK, BID
     Route: 047
  2. HYPADIL KOWA [Concomitant]
     Indication: Product used for unknown indication
     Dosage: UNK, QID
     Route: 065

REACTIONS (2)
  - Spinal compression fracture [Unknown]
  - Physical deconditioning [Unknown]
